FAERS Safety Report 5598495-3 (Version None)
Quarter: 2008Q1

REPORT INFORMATION
  Report Type: 
  Country: None (occurrence: None)
  Receive Date: 20080122
  Receipt Date: 20080103
  Transmission Date: 20080703
  Serious: Yes (Congenital Anomaly)
  Sender: FDA-Public Use
  Company Number: GB-TEVA-165917ISR

PATIENT
  Sex: Male

DRUGS (2)
  1. LAMOTRIGINE [Suspect]
     Indication: CONVULSION
     Route: 064
  2. LEVETIRACETAM [Suspect]
     Indication: CONVULSION
     Route: 064

REACTIONS (1)
  - UMBILICAL HERNIA [None]
